FAERS Safety Report 18344288 (Version 2)
Quarter: 2020Q4

REPORT INFORMATION
  Report Type: Spontaneous
  Country: FR (occurrence: FR)
  Receive Date: 20201005
  Receipt Date: 20201224
  Transmission Date: 20210114
  Serious: Yes (Other)
  Sender: FDA-Public Use
  Company Number: FR-JNJFOC-20200953262

PATIENT
  Age: 61 Year
  Sex: Female

DRUGS (8)
  1. CALTRATE [Concomitant]
     Active Substance: CALCIUM CARBONATE
     Dosage: 1 MATIN
     Route: 048
  2. UPTRAVI [Suspect]
     Active Substance: SELEXIPAG
     Indication: PULMONARY ARTERIAL HYPERTENSION
     Route: 048
     Dates: start: 20180407
  3. TRACLEER [Suspect]
     Active Substance: BOSENTAN
     Indication: PULMONARY ARTERIAL HYPERTENSION
     Dosage: 1 MATIN, 1 SOIR
     Route: 048
     Dates: start: 2009
  4. LOPERAMIDE [Concomitant]
     Active Substance: LOPERAMIDE
     Dosage: PRIS DE FACON QUOTIDIENNE PAR LA PATIENTE; AS REQUIRED
     Route: 048
  5. UVEDOSE [Concomitant]
     Active Substance: CHOLECALCIFEROL
     Route: 048
  6. ADCIRCA [Suspect]
     Active Substance: TADALAFIL
     Indication: PULMONARY ARTERIAL HYPERTENSION
     Route: 048
     Dates: start: 2013
  7. OLODATEROL;TIOTROPIUM [Concomitant]
     Dosage: LE MATIN
     Route: 055
  8. PREVISCAN                          /00789001/ [Concomitant]
     Active Substance: FLUINDIONE
     Dosage: 3 TO 4 TABLETS ODD-NUMBERED DAYS AND 1 TABLET EVEN-NUMBERED DAYS
     Route: 048

REACTIONS (1)
  - Thrombocytopenia [Not Recovered/Not Resolved]

NARRATIVE: CASE EVENT DATE: 20190525
